FAERS Safety Report 8797442 (Version 1)
Quarter: 2012Q4

REPORT INFORMATION
  Report Type: 
  Country: US (occurrence: US)
  Receive Date: 20120920
  Receipt Date: 20120920
  Transmission Date: 20130627
  Serious: Yes (Other)
  Sender: FDA-Public Use
  Company Number: US-PFIZER INC-2012228496

PATIENT
  Sex: Male

DRUGS (7)
  1. DETROL LA [Suspect]
     Indication: HYPERTONIC BLADDER
     Dosage: 4 mg, 1x/day
     Route: 048
     Dates: start: 20120827, end: 20120829
  2. DILTIAZEM [Concomitant]
     Indication: ATRIAL FIBRILLATION
     Dosage: 240 mg, 1x/day
  3. EFFEXOR-XR [Concomitant]
     Dosage: 150 mg, 1x/day
  4. COUMADIN [Concomitant]
     Indication: HYPERCOAGULATION
     Dosage: 2.5mg two times a week and 5mg five times a week
  5. VITAMIN D [Concomitant]
     Dosage: 5000 IU, UNK
  6. ALLEGRA [Concomitant]
     Indication: HYPERSENSITIVITY
     Dosage: 180 mg, UNK
  7. CHROMIUM [Concomitant]
     Dosage: UNK

REACTIONS (1)
  - Urinary retention [Unknown]
